FAERS Safety Report 13443077 (Version 5)
Quarter: 2017Q4

REPORT INFORMATION
  Report Type: Spontaneous
  Country: IT (occurrence: IT)
  Receive Date: 20170414
  Receipt Date: 20171003
  Transmission Date: 20180320
  Serious: Yes (Other)
  Sender: FDA-Public Use
  Company Number: IT-ACCORD-050145

PATIENT
  Age: 49 Year
  Sex: Male
  Weight: 58 kg

DRUGS (2)
  1. ABRAXANE [Suspect]
     Active Substance: PACLITAXEL
     Indication: ADENOCARCINOMA PANCREAS
     Dosage: C1D15 ABRAXANE/GEMCITABINE (DAY 1-8-15)
     Route: 042
     Dates: start: 20160711
  2. GEMCITABINE/GEMCITABINE HYDROCHLORIDE [Suspect]
     Active Substance: GEMCITABINE\GEMCITABINE HYDROCHLORIDE
     Indication: ADENOCARCINOMA PANCREAS
     Dosage: C1D15 ABRAXANE/GEMCITABINE (DAY 1-8-15)
     Route: 042
     Dates: start: 20160711

REACTIONS (7)
  - Diarrhoea [Recovering/Resolving]
  - Hypertransaminasaemia [Recovering/Resolving]
  - Anaemia [Recovering/Resolving]
  - Influenza [Recovering/Resolving]
  - Thrombocytosis [Recovering/Resolving]
  - Pruritus [Recovering/Resolving]
  - Abdominal pain [Recovering/Resolving]

NARRATIVE: CASE EVENT DATE: 20160715
